FAERS Safety Report 8775135 (Version 2)
Quarter: 2013Q4

REPORT INFORMATION
  Report Type: Spontaneous
  Country: US (occurrence: US)
  Receive Date: 20120910
  Receipt Date: 20131101
  Transmission Date: 20140711
  Serious: No
  Sender: FDA-Public Use
  Company Number: US-009507513-1209USA001788

PATIENT
  Age: 58 Year
  Sex: Female

DRUGS (3)
  1. ZETIA [Suspect]
     Indication: BLOOD CHOLESTEROL INCREASED
     Dosage: 10 MG, ONCE A DAY
     Route: 048
     Dates: end: 201208
  2. JANUMET [Concomitant]
     Route: 048
  3. LISINOPRIL [Concomitant]

REACTIONS (4)
  - Weight increased [Recovering/Resolving]
  - Abdominal distension [Recovering/Resolving]
  - Skin reaction [Not Recovered/Not Resolved]
  - Diarrhoea [Recovering/Resolving]
